FAERS Safety Report 25518385 (Version 1)
Quarter: 2025Q3

REPORT INFORMATION
  Report Type: Spontaneous
  Country: AU (occurrence: AU)
  Receive Date: 20250704
  Receipt Date: 20250704
  Transmission Date: 20251020
  Serious: Yes (Other)
  Sender: EXELA PHARMA SCIENCES
  Company Number: AU-EXELAPHARMA-2025EXLA00118

PATIENT
  Sex: Female

DRUGS (1)
  1. GLYRX-PF [Suspect]
     Active Substance: GLYCOPYRROLATE
     Indication: Bradycardia

REACTIONS (5)
  - Stress cardiomyopathy [Recovered/Resolved]
  - Dyspnoea [Unknown]
  - Tachycardia [Recovered/Resolved]
  - Hypertension [Recovered/Resolved]
  - Exposure during pregnancy [Unknown]
